FAERS Safety Report 24168686 (Version 1)
Quarter: 2024Q3

REPORT INFORMATION
  Report Type: Spontaneous
  Country: US (occurrence: None)
  Receive Date: 20240802
  Receipt Date: 20240802
  Transmission Date: 20241016
  Serious: Yes (Other)
  Sender: ASTRAZENECA
  Company Number: 2024A173621

PATIENT
  Sex: Male

DRUGS (3)
  1. ROSUVASTATIN [Suspect]
     Active Substance: ROSUVASTATIN\ROSUVASTATIN CALCIUM
     Route: 048
     Dates: start: 20240425
  2. VYNDAMAX [Suspect]
     Active Substance: TAFAMIDIS
     Route: 048
     Dates: start: 20240715
  3. VYNDAMAX [Suspect]
     Active Substance: TAFAMIDIS
     Route: 048
     Dates: start: 20240715

REACTIONS (1)
  - Cardiac amyloidosis [Unknown]
